FAERS Safety Report 6888383-4 (Version None)
Quarter: 2010Q3

REPORT INFORMATION
  Report Type: 
  Country: None (occurrence: None)
  Receive Date: 20100730
  Receipt Date: 20100721
  Transmission Date: 20110219
  Serious: Yes (Other)
  Sender: FDA-Public Use
  Company Number: JP-ROCHE-695926

PATIENT
  Sex: Female

DRUGS (37)
  1. TOCILIZUMAB [Suspect]
     Indication: CASTLEMAN'S DISEASE
     Route: 041
     Dates: start: 20091221
  2. PREDNISOLONE [Concomitant]
     Dosage: DOSE FORM: PERORAL AGENT
     Route: 048
     Dates: start: 20090915, end: 20091029
  3. PREDNISOLONE [Concomitant]
     Route: 048
     Dates: start: 20091029, end: 20091029
  4. PREDNISOLONE [Concomitant]
     Route: 048
     Dates: start: 20091030, end: 20091105
  5. PREDNISOLONE [Concomitant]
     Route: 048
     Dates: start: 20091106, end: 20091112
  6. PREDNISOLONE [Concomitant]
     Route: 048
     Dates: start: 20091113, end: 20091119
  7. PREDNISOLONE [Concomitant]
     Route: 048
     Dates: start: 20091120, end: 20091126
  8. PREDNISOLONE [Concomitant]
     Route: 048
     Dates: start: 20091129, end: 20091203
  9. PREDNISOLONE [Concomitant]
     Route: 048
     Dates: start: 20091204, end: 20091210
  10. PREDNISOLONE [Concomitant]
     Route: 048
     Dates: start: 20091211, end: 20091217
  11. PREDNISOLONE [Concomitant]
     Route: 048
     Dates: start: 20091218, end: 20091224
  12. PREDNISOLONE [Concomitant]
     Route: 048
     Dates: start: 20091225, end: 20091231
  13. PREDNISOLONE [Concomitant]
     Route: 048
     Dates: start: 20100101, end: 20100118
  14. PREDNISOLONE [Concomitant]
     Route: 048
     Dates: start: 20100119, end: 20100201
  15. PREDNISOLONE [Concomitant]
     Route: 048
     Dates: start: 20100202, end: 20100215
  16. PREDNISOLONE [Concomitant]
     Route: 048
     Dates: start: 20100216, end: 20100301
  17. PREDNISOLONE [Concomitant]
     Route: 048
     Dates: start: 20100302, end: 20100314
  18. PREDNISOLONE [Concomitant]
     Route: 048
     Dates: start: 20100315, end: 20100328
  19. SOLU-MEDROL [Concomitant]
     Route: 041
     Dates: start: 20090930, end: 20091003
  20. ITRIZOLE [Concomitant]
     Dosage: DOSE FORM: PERORAL LIQUID PREPARATION
     Route: 048
     Dates: start: 20090915
  21. TAKEPRON [Concomitant]
     Route: 048
     Dates: start: 20090915
  22. DIOVAN [Concomitant]
     Route: 048
     Dates: end: 20100214
  23. DIOVAN [Concomitant]
     Route: 048
     Dates: start: 20100215
  24. AMARYL [Concomitant]
     Route: 048
     Dates: end: 20100301
  25. AMARYL [Concomitant]
     Route: 048
     Dates: start: 20100302, end: 20100705
  26. FLUITRAN [Concomitant]
     Route: 048
     Dates: start: 20091027
  27. MUCOSTA [Concomitant]
     Dosage: DOSE FORM: PERORAL AGENT
     Route: 048
     Dates: start: 20090915, end: 20100215
  28. GLYCORAN [Concomitant]
     Route: 048
     Dates: end: 20100301
  29. BASEN [Concomitant]
     Route: 048
     Dates: start: 20091003
  30. AZELASTINE HCL [Concomitant]
     Route: 048
     Dates: start: 20091023
  31. ACTONEL [Concomitant]
     Route: 048
     Dates: start: 20091030
  32. LEXOTAN [Concomitant]
     Dosage: FORM: PERORAL AGENT
     Route: 048
     Dates: start: 20091028, end: 20100301
  33. LENDORMIN [Concomitant]
     Route: 048
     Dates: start: 20091203
  34. MAGMITT [Concomitant]
     Route: 048
     Dates: start: 20091002
  35. LANTUS [Concomitant]
     Dosage: DRUG:LANTUS(INSULIN GLARGINE(GENETICAL RECOMBINATION))
     Route: 058
     Dates: start: 20091018, end: 20100607
  36. BENAMBAX [Concomitant]
     Dosage: DOSE FORM: RESPIRATORY TONIC ROUTE: RESPIRATORY INHALATION
     Route: 055
     Dates: start: 20091109
  37. KALIMATE [Concomitant]
     Dosage: DOSE FORM: POWDERED MEDICINE
     Route: 048
     Dates: start: 20100215, end: 20100705

REACTIONS (3)
  - ARTHRALGIA [None]
  - GRANULOCYTE COUNT DECREASED [None]
  - HEPATIC STEATOSIS [None]
